FAERS Safety Report 8434837-9 (Version None)
Quarter: 2012Q2

REPORT INFORMATION
  Report Type: 
  Country: None (occurrence: None)
  Receive Date: 20120614
  Receipt Date: 20120606
  Transmission Date: 20120825
  Serious: Yes (Death)
  Sender: FDA-Public Use
  Company Number: US-JNJFOC-20120605530

PATIENT
  Age: 95 Year
  Sex: Female

DRUGS (2)
  1. MORPHINE [Concomitant]
     Indication: PRODUCT USED FOR UNKNOWN INDICATION
     Route: 065
  2. BENADRYL [Suspect]
     Indication: SLEEP DISORDER THERAPY
     Route: 048

REACTIONS (2)
  - DEATH [None]
  - OFF LABEL USE [None]
